FAERS Safety Report 7912434-9 (Version None)
Quarter: 2011Q4

REPORT INFORMATION
  Report Type: 
  Country: None (occurrence: None)
  Receive Date: 20111114
  Receipt Date: 20111109
  Transmission Date: 20120403
  Serious: Yes (Life-Threatening)
  Sender: FDA-Public Use
  Company Number: GB-PFIZER INC-2011275243

PATIENT
  Age: 46 Year
  Sex: Male

DRUGS (6)
  1. ENOXAPARIN [Concomitant]
     Dosage: 40 MG, UNK
     Route: 058
     Dates: start: 20111008
  2. AMOXICILLIN AND CLAVULANATE POTASSIUM [Concomitant]
     Dosage: 1.2 MG, UNK
     Route: 042
     Dates: start: 20111010
  3. PIPERACILLIN AND TAZOBACTAM [Suspect]
     Indication: SEPSIS
     Dosage: 1.5 G, UNK
     Route: 042
     Dates: start: 20111025, end: 20111025
  4. OXYCONTIN [Concomitant]
     Dosage: 20 MG, UNK
     Route: 048
     Dates: start: 20111018
  5. DOCUSATE SODIUM [Concomitant]
     Dosage: 100 MG, UNK
     Route: 048
     Dates: start: 20111008
  6. TRAMADOL [Concomitant]
     Dosage: 100 MG, UNK
     Route: 048
     Dates: start: 20111018

REACTIONS (4)
  - HEART RATE INCREASED [None]
  - HYPOTENSION [None]
  - VISUAL IMPAIRMENT [None]
  - BLINDNESS TRANSIENT [None]
